FAERS Safety Report 22054325 (Version 1)
Quarter: 2023Q1

REPORT INFORMATION
  Report Type: Spontaneous
  Country: US (occurrence: US)
  Receive Date: 20230302
  Receipt Date: 20230302
  Transmission Date: 20230418
  Serious: No
  Sender: FDA-Public Use
  Company Number: US-NOVOPROD-1007909

PATIENT
  Sex: Female

DRUGS (1)
  1. SAXENDA [Suspect]
     Active Substance: LIRAGLUTIDE
     Indication: Product used for unknown indication
     Dosage: 1.8MG
     Route: 058
     Dates: start: 20220801

REACTIONS (4)
  - Rash [Unknown]
  - Pruritus [Unknown]
  - Injection site mass [Unknown]
  - Urticaria [Unknown]

NARRATIVE: CASE EVENT DATE: 20220801
